FAERS Safety Report 15582870 (Version 1)
Quarter: 2018Q4

REPORT INFORMATION
  Report Type: Spontaneous
  Country: US (occurrence: US)
  Receive Date: 20181031
  Receipt Date: 20181031
  Transmission Date: 20190205
  Serious: Yes (Hospitalization, Other)
  Sender: FDA-Public Use
  Company Number: None

PATIENT
  Age: 59 Year
  Sex: Male
  Weight: 103.5 kg

DRUGS (2)
  1. GARDASIL [Suspect]
     Active Substance: HUMAN PAPILLOMAVIRUS QUADRIVALENT (TYPES 6, 11, 16, AND 18) VACCINE, RECOMBINANT
  2. OPDIVO [Suspect]
     Active Substance: NIVOLUMAB
     Indication: CLEAR CELL RENAL CELL CARCINOMA
     Dosage: ?          QUANTITY:1 DF DOSAGE FORM;OTHER ROUTE:CHEST PORT?

REACTIONS (10)
  - Malaise [None]
  - Drug intolerance [None]
  - Drug ineffective [None]
  - Blister [None]
  - Cardiac infection [None]
  - Tongue discomfort [None]
  - Therapy change [None]
  - Lung infection [None]
  - Scar [None]
  - Nodule [None]
